FAERS Safety Report 7350236-5 (Version None)
Quarter: 2011Q1

REPORT INFORMATION
  Report Type: 
  Country: None (occurrence: None)
  Receive Date: 20110314
  Receipt Date: 20110302
  Transmission Date: 20110831
  Serious: Yes (Death, Life-Threatening, Other)
  Sender: FDA-Public Use
  Company Number: JP-ROCHE-585977

PATIENT
  Sex: Male
  Weight: 53 kg

DRUGS (12)
  1. NORVASC [Concomitant]
     Route: 048
     Dates: start: 20080731
  2. ITRIZOLE [Concomitant]
     Route: 048
     Dates: start: 20080731
  3. ELPLAT [Concomitant]
     Dosage: DOSAGE IS UNCERTAIN.
     Route: 041
     Dates: start: 20080606
  4. 5-FU [Concomitant]
     Dosage: INTRAVENOUS BOLUS, DOSAGE IS UNCERTAIN.
     Route: 042
     Dates: start: 20080606
  5. ALTAT [Concomitant]
     Route: 048
     Dates: start: 20080731
  6. AVASTIN [Suspect]
     Indication: COLON CANCER METASTATIC
     Route: 041
     Dates: start: 20080716, end: 20080902
  7. RHYTHMY [Concomitant]
     Route: 048
     Dates: start: 20080731
  8. 5-FU [Concomitant]
     Dosage: INTRAVENOUS DRIP
     Route: 042
  9. OMEPRAL [Concomitant]
     Route: 048
     Dates: start: 20080731
  10. CALCIUM LEVOFOLINATE [Concomitant]
     Dosage: DOSAGE IS UNCERTAIN.
     Route: 041
     Dates: start: 20080606
  11. BLOPRESS [Concomitant]
     Route: 048
     Dates: start: 20080731
  12. VOLTAREN [Concomitant]
     Dosage: DRUG REPORTED
     Route: 048
     Dates: start: 20080731

REACTIONS (9)
  - COLONIC STENOSIS [None]
  - SHOCK HAEMORRHAGIC [None]
  - LARGE INTESTINE PERFORATION [None]
  - HYPERTENSION [None]
  - PEPTIC ULCER HAEMORRHAGE [None]
  - PLATELET COUNT DECREASED [None]
  - ASTHENIA [None]
  - BLOOD PRESSURE INCREASED [None]
  - NEUTROPHIL COUNT DECREASED [None]
